FAERS Safety Report 13766905 (Version 1)
Quarter: 2017Q3

REPORT INFORMATION
  Report Type: Spontaneous
  Country: US (occurrence: US)
  Receive Date: 20170719
  Receipt Date: 20170719
  Transmission Date: 20171127
  Serious: No
  Sender: FDA-Public Use
  Company Number: US-PFIZER INC-2017307966

PATIENT
  Age: 49 Year
  Sex: Female
  Weight: 119.75 kg

DRUGS (6)
  1. LYRICA [Suspect]
     Active Substance: PREGABALIN
     Indication: NEURALGIA
     Dosage: 200 MG, DAILY (50 MG TWO CAPSULES IN THE MORNING AND TWO CAPSULES AT NIGHT)
     Dates: start: 201705
  2. LYRICA [Suspect]
     Active Substance: PREGABALIN
     Dosage: 250 MG, DAILY (50 MG CAPSULE, 2 IN THE MORNING, 1 IN THE AFTERNOON, AND 2 AT NIGHT)
     Dates: start: 201707
  3. GABAPENTIN. [Concomitant]
     Active Substance: GABAPENTIN
     Dosage: UNK (8 TO 12 A DAY)
  4. LISINOPRIL/HCTZ [Concomitant]
     Active Substance: HYDROCHLOROTHIAZIDE\LISINOPRIL
     Indication: HYPERTENSION
     Dosage: 2 DF, 1X/DAY ([HYDROCHLOROTHIAZIDE 12.5MG]/[LISINOPRIL 20MG] TWO TABLETS ONCE DAILY)
     Route: 048
  5. GABAPENTIN. [Concomitant]
     Active Substance: GABAPENTIN
     Indication: PAIN IN EXTREMITY
     Dosage: UNK (1-2  AT NIGHT)
  6. LEVOTHYROXINE. [Concomitant]
     Active Substance: LEVOTHYROXINE
     Indication: HYPOTHYROIDISM
     Dosage: 75 UG, 1X/DAY (75 MCG TABLET ONCE DAILY)
     Route: 048

REACTIONS (4)
  - Drug ineffective [Unknown]
  - Feeling abnormal [Unknown]
  - Drug effect delayed [Unknown]
  - Somnolence [Unknown]
